FAERS Safety Report 18216305 (Version 1)
Quarter: 2020Q3

REPORT INFORMATION
  Report Type: Spontaneous
  Country: CA (occurrence: CA)
  Receive Date: 20200901
  Receipt Date: 20200901
  Transmission Date: 20201103
  Serious: Yes (Life-Threatening)
  Sender: FDA-Public Use
  Company Number: CA-ACCORD-198192

PATIENT
  Age: 70 Year
  Sex: Male

DRUGS (12)
  1. ROSUVASTATIN. [Suspect]
     Active Substance: ROSUVASTATIN
     Indication: HYPERLIPIDAEMIA
     Dosage: 1 EVERY 1 DAYS
  2. SALBUTAMOL [Concomitant]
     Active Substance: ALBUTEROL
  3. SPIRONOLACTONE. [Concomitant]
     Active Substance: SPIRONOLACTONE
  4. ELIQUIS [Concomitant]
     Active Substance: APIXABAN
  5. GLICLAZIDE [Concomitant]
     Active Substance: GLICLAZIDE
  6. ADVAIR HFA [Concomitant]
     Active Substance: FLUTICASONE PROPIONATE\SALMETEROL XINAFOATE
  7. ALLOPURINOL. [Concomitant]
     Active Substance: ALLOPURINOL
  8. JARDIANCE [Concomitant]
     Active Substance: EMPAGLIFLOZIN
  9. METOPROLOL. [Concomitant]
     Active Substance: METOPROLOL
  10. ATROVENT [Concomitant]
     Active Substance: IPRATROPIUM BROMIDE
  11. POTASSIUM CHLORIDE. [Concomitant]
     Active Substance: POTASSIUM CHLORIDE
  12. FUROSEMIDE. [Concomitant]
     Active Substance: FUROSEMIDE

REACTIONS (6)
  - Cardiomyopathy [Unknown]
  - Immune-mediated myositis [Unknown]
  - Blood creatine phosphokinase increased [Unknown]
  - Blood creatinine increased [Unknown]
  - Acute kidney injury [Unknown]
  - Respiratory failure [Unknown]
